FAERS Safety Report 19190586 (Version 1)
Quarter: 2021Q2

REPORT INFORMATION
  Report Type: Other
  Country: US (occurrence: US)
  Receive Date: 20210428
  Receipt Date: 20210428
  Transmission Date: 20210717
  Serious: Yes (Other)
  Sender: FDA-Public Use
  Company Number: US-ROCHE-2817081

PATIENT

DRUGS (1)
  1. ALTEPLASE. [Suspect]
     Active Substance: ALTEPLASE
     Indication: ISCHAEMIC STROKE
     Route: 065

REACTIONS (6)
  - Vascular pseudoaneurysm [Unknown]
  - Femoral artery dissection [Unknown]
  - Arterial injury [Unknown]
  - Peripheral artery occlusion [Unknown]
  - Haematoma [Unknown]
  - Femoral artery perforation [Unknown]
